FAERS Safety Report 10216187 (Version 2)
Quarter: 2014Q2

REPORT INFORMATION
  Report Type: Spontaneous
  Country: US (occurrence: US)
  Receive Date: 20140604
  Receipt Date: 20140613
  Transmission Date: 20141212
  Serious: Yes (Other)
  Sender: FDA-Public Use
  Company Number: US-BAXTER-2014BAX028436

PATIENT
  Age: 72 Year
  Sex: Female

DRUGS (1)
  1. DIANEAL LOW CALCIUM [Suspect]
     Indication: RENAL FAILURE CHRONIC
     Dosage: 11000 TOTAL FILL
     Route: 033

REACTIONS (2)
  - Bronchitis [Recovered/Resolved]
  - Asthma [Unknown]
